FAERS Safety Report 5106120-0 (Version None)
Quarter: 2006Q3

REPORT INFORMATION
  Report Type: 
  Country: None (occurrence: None)
  Receive Date: 20060911
  Receipt Date: 20060830
  Transmission Date: 20061208
  Serious: Yes (Other)
  Sender: FDA-Public Use
  Company Number: HQWYE246201SEP06

PATIENT
  Sex: Female

DRUGS (2)
  1. EFFEXOR XR [Suspect]
     Indication: DEPRESSION
     Dosage: 150 MG 1X PER 1 DAY, ORAL
     Route: 048
     Dates: end: 20060101
  2. WELLBUTRIN XL [Suspect]
     Dosage: 300 MG 1X PER 1 DAY
     Dates: end: 20060101

REACTIONS (4)
  - BLOOD TESTOSTERONE INCREASED [None]
  - DRUG WITHDRAWAL SYNDROME [None]
  - MENORRHAGIA [None]
  - SUICIDAL IDEATION [None]
